FAERS Safety Report 11683135 (Version 2)
Quarter: 2015Q4

REPORT INFORMATION
  Report Type: Spontaneous
  Country: CH (occurrence: CH)
  Receive Date: 20151029
  Receipt Date: 20151102
  Transmission Date: 20160304
  Serious: Yes (Congenital Anomaly, Other)
  Sender: FDA-Public Use
  Company Number: PHHY2015CH137403

PATIENT
  Age: 0 Year
  Sex: Male
  Weight: .4 kg

DRUGS (7)
  1. NEBILET [Suspect]
     Active Substance: NEBIVOLOL
     Indication: FOETAL EXPOSURE DURING PREGNANCY
     Dosage: MOTHER DOSE: 10 MG, QD
     Route: 064
  2. LESCOL [Suspect]
     Active Substance: FLUVASTATIN SODIUM
     Indication: FOETAL EXPOSURE DURING PREGNANCY
     Dosage: MOTHER DOSE: 80 MG, QD
     Route: 064
  3. XYZAL [Suspect]
     Active Substance: LEVOCETIRIZINE DIHYDROCHLORIDE
     Indication: FOETAL EXPOSURE DURING PREGNANCY
     Dosage: MOTHER DOSE: 5 MG
     Route: 064
  4. DAFALGAN [Suspect]
     Active Substance: ACETAMINOPHEN
     Indication: FOETAL EXPOSURE DURING PREGNANCY
     Route: 064
  5. DIOVAN [Suspect]
     Active Substance: VALSARTAN
     Indication: FOETAL EXPOSURE DURING PREGNANCY
     Dosage: MOTHER DOSE:80 MG, QD
     Route: 064
  6. SYMBICORT [Suspect]
     Active Substance: BUDESONIDE\FORMOTEROL FUMARATE DIHYDRATE
     Indication: FOETAL EXPOSURE DURING PREGNANCY
     Route: 064
  7. VENTOLIN [Suspect]
     Active Substance: ALBUTEROL SULFATE
     Indication: FOETAL EXPOSURE DURING PREGNANCY
     Route: 064

REACTIONS (16)
  - Premature baby [Recovered/Resolved]
  - Patent ductus arteriosus [Recovered/Resolved]
  - Congenital inguinal hernia [Recovered/Resolved]
  - Foetal growth restriction [Recovered/Resolved]
  - Bronchopulmonary dysplasia [Recovered/Resolved]
  - Hypoglycaemia neonatal [Recovered/Resolved]
  - Hypokalaemia [Recovered/Resolved]
  - Hyperbilirubinaemia neonatal [Recovered/Resolved]
  - Exposure during pregnancy [Recovered/Resolved]
  - Atrial septal defect [Unknown]
  - Neonatal infection [Recovered/Resolved]
  - Neonatal respiratory distress syndrome [Recovered/Resolved]
  - Renal failure [Recovered/Resolved]
  - Metabolic alkalosis [Recovered/Resolved]
  - Anaemia [Recovered/Resolved]
  - Thrombocytopenia [Recovered/Resolved]

NARRATIVE: CASE EVENT DATE: 20130917
